FAERS Safety Report 19211526 (Version 1)
Quarter: 2021Q2

REPORT INFORMATION
  Report Type: Spontaneous
  Country: US (occurrence: US)
  Receive Date: 20210504
  Receipt Date: 20210504
  Transmission Date: 20210717
  Serious: Yes (Hospitalization)
  Sender: FDA-Public Use
  Company Number: US-SA-2021SA145768

PATIENT
  Age: 40 Year
  Sex: Female

DRUGS (5)
  1. NARCOTINE [Concomitant]
     Active Substance: NOSCAPINE
  2. DUPIXENT [Suspect]
     Active Substance: DUPILUMAB
     Dosage: 300 MG, QOW
     Route: 058
     Dates: start: 20191105
  3. DUPIXENT [Suspect]
     Active Substance: DUPILUMAB
     Indication: ASTHMA
     Dosage: 300 MG/2ML
     Route: 058
     Dates: start: 20201014
  4. PREDNISONE. [Concomitant]
     Active Substance: PREDNISONE
  5. VITAMIN B CO [Concomitant]

REACTIONS (4)
  - Impaired quality of life [Unknown]
  - Product use issue [Unknown]
  - Stress [Not Recovered/Not Resolved]
  - Asthma [Unknown]

NARRATIVE: CASE EVENT DATE: 20191105
